FAERS Safety Report 6692832-4 (Version None)
Quarter: 2010Q2

REPORT INFORMATION
  Report Type: 
  Country: None (occurrence: None)
  Receive Date: 20100419
  Receipt Date: 20100406
  Transmission Date: 20101027
  Serious: Yes (Death)
  Sender: FDA-Public Use
  Company Number: 555635

PATIENT
  Age: 39 Year
  Sex: Male
  Weight: 105.1 kg

DRUGS (1)
  1. MORPHINE SULFATE [Suspect]
     Indication: DRUG USE FOR UNKNOWN INDICATION
     Dosage: 60MG ONE HOUR DOSE LIMIT, 10 MINUTE PATIENT LOCKOUT IN PCA ONLY MODE,   INTRAVENOUS
     Route: 042
     Dates: start: 20100315, end: 20100315

REACTIONS (1)
  - CARDIO-RESPIRATORY ARREST [None]
